FAERS Safety Report 6055709-3 (Version None)
Quarter: 2009Q1

REPORT INFORMATION
  Report Type: 
  Country: None (occurrence: None)
  Receive Date: 20090128
  Receipt Date: 20090126
  Transmission Date: 20090719
  Serious: Yes (Hospitalization)
  Sender: FDA-Public Use
  Company Number: US-GILEAD-2009-0020004

PATIENT
  Sex: Female

DRUGS (10)
  1. LETAIRIS [Suspect]
     Indication: PULMONARY ARTERIAL HYPERTENSION
     Route: 048
     Dates: start: 20081112
  2. REVATIO [Concomitant]
  3. BUPROPION HCL [Concomitant]
  4. LEXAPRO [Concomitant]
  5. TOPAMAX [Concomitant]
  6. PREDNISONE [Concomitant]
  7. CYPROHEPTAD [Concomitant]
  8. LYRICA [Concomitant]
  9. TRAMADOL HCL [Concomitant]
  10. OMEPRAZOLE [Concomitant]

REACTIONS (2)
  - DYSPNOEA [None]
  - UPPER RESPIRATORY TRACT INFECTION [None]
